FAERS Safety Report 23075797 (Version 2)
Quarter: 2023Q4

REPORT INFORMATION
  Report Type: Report from Study
  Country: US (occurrence: US)
  Receive Date: 20231017
  Receipt Date: 20231120
  Transmission Date: 20240109
  Serious: No
  Sender: FDA-Public Use
  Company Number: US-002147023-NVSC2023US221919

PATIENT
  Sex: Male

DRUGS (1)
  1. ENTRESTO [Suspect]
     Active Substance: SACUBITRIL\VALSARTAN
     Indication: Product used for unknown indication
     Dosage: 1 DOSAGE FORM, BID
     Route: 048
     Dates: start: 20231006

REACTIONS (5)
  - Joint swelling [Recovering/Resolving]
  - Swollen tongue [Recovering/Resolving]
  - Blood pressure decreased [Unknown]
  - Weight increased [Unknown]
  - Dizziness [Unknown]
